FAERS Safety Report 4710119-3 (Version None)
Quarter: 2005Q3

REPORT INFORMATION
  Report Type: 
  Country: None (occurrence: None)
  Receive Date: 20050708
  Receipt Date: 20050708
  Transmission Date: 20060218
  Serious: Yes (Hospitalization)
  Sender: FDA-Public Use
  Company Number: None

PATIENT
  Age: 40 Year
  Sex: Female

DRUGS (8)
  1. LAMOTRIGINE [Suspect]
     Indication: TEMPORAL LOBE EPILEPSY
     Dosage: 50 MG PO BID
     Route: 048
     Dates: start: 20050426
  2. TEGRETOL-XR [Suspect]
     Indication: TEMPORAL LOBE EPILEPSY
     Dosage: SEE IMAGE
     Dates: start: 20000601
  3. DILANTIN [Suspect]
  4. KEPPRA [Concomitant]
  5. LEXAPRO [Concomitant]
  6. IMIPRAMINE [Concomitant]
  7. DITROPAN XL [Concomitant]
  8. FE GLUCONATE [Concomitant]

REACTIONS (9)
  - DEHYDRATION [None]
  - HEPATIC ENZYME INCREASED [None]
  - HEPATITIS [None]
  - MALNUTRITION [None]
  - NAUSEA [None]
  - PANCREATITIS [None]
  - RHABDOMYOLYSIS [None]
  - THROMBOCYTOPENIA [None]
  - VOMITING [None]
